FAERS Safety Report 11984790 (Version 4)
Quarter: 2017Q3

REPORT INFORMATION
  Report Type: Report from Study
  Country: JP (occurrence: JP)
  Receive Date: 20160201
  Receipt Date: 20170825
  Transmission Date: 20171127
  Serious: Yes (Hospitalization, Other)
  Sender: FDA-Public Use
  Company Number: JP-EISAI MEDICAL RESEARCH-EC-2016-014047

PATIENT
  Age: 68 Year
  Sex: Female
  Weight: 61 kg

DRUGS (15)
  1. ADALAT [Concomitant]
     Active Substance: NIFEDIPINE
  2. MUCOSOL VAN [Concomitant]
  3. LENVIMA [Suspect]
     Active Substance: LENVATINIB
     Indication: PAPILLARY THYROID CANCER
     Route: 048
     Dates: start: 20150714, end: 20150715
  4. LENVIMA [Suspect]
     Active Substance: LENVATINIB
     Route: 048
     Dates: start: 20150717, end: 20151030
  5. LENVIMA [Suspect]
     Active Substance: LENVATINIB
     Route: 048
     Dates: start: 20151216, end: 20160308
  6. MYSER [Concomitant]
     Active Substance: DIFLUPREDNATE
  7. BISOLVON [Concomitant]
     Active Substance: BROMHEXINE HYDROCHLORIDE
  8. LENVIMA [Suspect]
     Active Substance: LENVATINIB
     Route: 048
     Dates: start: 20150716, end: 20150716
  9. LEVOTHYROXINE SODIUM HYDRATE [Concomitant]
     Active Substance: LEVOTHYROXINE SODIUM
  10. RINDERON V [Concomitant]
     Active Substance: BETAMETHASONE VALERATE
  11. PYDOXAL [Concomitant]
     Active Substance: PYRIDOXAL
  12. CANDESARTAN. [Concomitant]
     Active Substance: CANDESARTAN
  13. NORVASC [Concomitant]
     Active Substance: AMLODIPINE BESYLATE
  14. LANSOPRAZOLE. [Concomitant]
     Active Substance: LANSOPRAZOLE
  15. LENVIMA [Suspect]
     Active Substance: LENVATINIB
     Route: 048
     Dates: start: 20160309

REACTIONS (1)
  - Perforation [Recovered/Resolved]

NARRATIVE: CASE EVENT DATE: 20151030
